FAERS Safety Report 13678030 (Version 1)
Quarter: 2017Q2

REPORT INFORMATION
  Report Type: Spontaneous
  Country: US (occurrence: US)
  Receive Date: 20170621
  Receipt Date: 20170621
  Transmission Date: 20170830
  Serious: Yes (Death)
  Sender: FDA-Public Use
  Company Number: None

PATIENT
  Age: 55 Year
  Sex: Male
  Weight: 48.58 kg

DRUGS (1)
  1. CAMPATH [Suspect]
     Active Substance: ALEMTUZUMAB
     Indication: TRANSPLANT
     Route: 042
     Dates: start: 20101115, end: 20101119

REACTIONS (8)
  - Dysphagia [None]
  - Acute kidney injury [None]
  - Diabetes mellitus inadequate control [None]
  - Oesophagitis [None]
  - Pneumonia aspiration [None]
  - Chronic kidney disease [None]
  - Osteomyelitis [None]
  - Diabetic ketoacidosis [None]

NARRATIVE: CASE EVENT DATE: 20170619
